FAERS Safety Report 8834453 (Version 2)
Quarter: 2013Q2

REPORT INFORMATION
  Report Type: Report from Study
  Country: DE (occurrence: DE)
  Receive Date: 20121010
  Receipt Date: 20130506
  Transmission Date: 20140414
  Serious: Yes (Hospitalization)
  Sender: FDA-Public Use
  Company Number: PHHO2012DE014618

PATIENT
  Age: 38 Year
  Sex: Male
  Weight: 78.9 kg

DRUGS (4)
  1. BLINDED AFINITOR [Suspect]
     Indication: TUBEROUS SCLEROSIS
     Dosage: CODE NOT BROKEN
     Route: 048
     Dates: start: 20091216, end: 20121008
  2. BLINDED NO TREATMENT RECEIVED [Suspect]
     Indication: TUBEROUS SCLEROSIS
     Dosage: CODE NOT BROKEN
     Route: 048
     Dates: start: 20091216, end: 20121008
  3. BLINDED PLACEBO [Suspect]
     Indication: TUBEROUS SCLEROSIS
     Dosage: CODE NOT BROKEN
     Route: 048
     Dates: start: 20091216, end: 20121008
  4. RAD001 [Suspect]
     Indication: TUBEROUS SCLEROSIS

REACTIONS (1)
  - Thrombosis [Recovered/Resolved]
